FAERS Safety Report 8350978-9 (Version None)
Quarter: 2012Q2

REPORT INFORMATION
  Report Type: 
  Country: None (occurrence: None)
  Receive Date: 20120510
  Receipt Date: 20120430
  Transmission Date: 20120825
  Serious: Yes (Other)
  Sender: FDA-Public Use
  Company Number: US-CELGENEUS-163-21880-12050227

PATIENT
  Sex: Male

DRUGS (14)
  1. VALTREX [Concomitant]
     Route: 065
  2. AMBIEN [Concomitant]
     Route: 065
  3. ARANESP [Concomitant]
     Route: 065
  4. DEXAMETHASONE [Concomitant]
     Indication: MULTIPLE MYELOMA
     Route: 065
     Dates: start: 20111011
  5. ASPIRIN [Concomitant]
     Route: 065
  6. VELCADE [Concomitant]
     Indication: MULTIPLE MYELOMA
     Route: 065
     Dates: start: 20111011
  7. REVLIMID [Suspect]
     Dosage: 10 MILLIGRAM
     Route: 048
     Dates: start: 20120301
  8. ACTOS [Concomitant]
     Route: 065
  9. CYCLOPHOSPHAMIDE [Concomitant]
     Indication: MULTIPLE MYELOMA
     Route: 065
     Dates: start: 20111011
  10. LISINOPRIL [Concomitant]
     Route: 065
  11. THYROID [Concomitant]
     Route: 065
  12. REVLIMID [Suspect]
     Indication: MULTIPLE MYELOMA
     Dosage: 25 MILLIGRAM
     Route: 048
     Dates: start: 20111011
  13. LANTUS [Concomitant]
     Dosage: HIGH DOSE
     Route: 065
  14. CRESTOR [Concomitant]
     Route: 065

REACTIONS (2)
  - HAEMOGLOBIN DECREASED [None]
  - BASAL CELL CARCINOMA [None]
